FAERS Safety Report 7784479-3 (Version None)
Quarter: 2011Q3

REPORT INFORMATION
  Report Type: 
  Country: None (occurrence: None)
  Receive Date: 20110928
  Receipt Date: 20110919
  Transmission Date: 20111222
  Serious: Yes (Other)
  Sender: FDA-Public Use
  Company Number: PHHY2011GB84358

PATIENT
  Age: 34 Year
  Sex: Male

DRUGS (2)
  1. METHYLPREDNISOLONE [Suspect]
     Route: 042
  2. PREDNISOLONE [Suspect]
     Route: 048

REACTIONS (5)
  - WEIGHT DECREASED [None]
  - TYPE 1 DIABETES MELLITUS [None]
  - THIRST [None]
  - SOMNOLENCE [None]
  - DIABETIC KETOACIDOSIS [None]
